FAERS Safety Report 18504268 (Version 1)
Quarter: 2020Q4

REPORT INFORMATION
  Report Type: Report from Study
  Country: None (occurrence: US)
  Receive Date: 20201113
  Receipt Date: 20201113
  Transmission Date: 20210114
  Serious: Yes (Other)
  Sender: FDA-Public Use
  Company Number: US-ABBVIE-20K-163-3642543-00

PATIENT
  Age: 18 Year
  Sex: Female

DRUGS (2)
  1. ORILISSA [Suspect]
     Active Substance: ELAGOLIX SODIUM
     Route: 048
     Dates: start: 202010
  2. ORILISSA [Suspect]
     Active Substance: ELAGOLIX SODIUM
     Indication: PRODUCT USED FOR UNKNOWN INDICATION
     Route: 048

REACTIONS (6)
  - Laparoscopic surgery [Not Recovered/Not Resolved]
  - Drug ineffective [Unknown]
  - Cyst [Unknown]
  - Laparoscopic surgery [Not Recovered/Not Resolved]
  - Laparoscopic surgery [Not Recovered/Not Resolved]
  - Discharge [Unknown]

NARRATIVE: CASE EVENT DATE: 2020
